FAERS Safety Report 12534566 (Version 1)
Quarter: 2016Q3

REPORT INFORMATION
  Report Type: Spontaneous
  Country: GB (occurrence: GB)
  Receive Date: 20160706
  Receipt Date: 20160706
  Transmission Date: 20161109
  Serious: Yes (Other)
  Sender: FDA-Public Use
  Company Number: GB-ALLERGAN-1661875US

PATIENT
  Age: 30 Year
  Sex: Female

DRUGS (1)
  1. MESALAZINE UNK [Suspect]
     Active Substance: MESALAMINE
     Indication: COLITIS ULCERATIVE
     Dosage: 800 MG, BID
     Route: 048

REACTIONS (5)
  - Lung disorder [Recovered/Resolved]
  - Refusal of treatment by patient [None]
  - Eosinophilic pneumonia chronic [Recovered/Resolved]
  - Haematuria [None]
  - Pleural effusion [None]
